FAERS Safety Report 7307546-7 (Version None)
Quarter: 2011Q1

REPORT INFORMATION
  Report Type: 
  Country: None (occurrence: None)
  Receive Date: 20110223
  Receipt Date: 20110215
  Transmission Date: 20110831
  Serious: Yes (Death, Other)
  Sender: FDA-Public Use
  Company Number: MX-SANOFI-AVENTIS-2011SA009966

PATIENT
  Age: 51 Year
  Sex: Female

DRUGS (2)
  1. ALL OTHER THERAPEUTIC PRODUCTS [Concomitant]
  2. ARAVA [Suspect]
     Indication: RHEUMATOID ARTHRITIS
     Route: 048
     Dates: start: 20070101, end: 20110131

REACTIONS (1)
  - BREAST CANCER [None]
